FAERS Safety Report 4393639-3 (Version None)
Quarter: 2004Q3

REPORT INFORMATION
  Report Type: 
  Country: None (occurrence: None)
  Receive Date: 20040709
  Receipt Date: 20040610
  Transmission Date: 20050211
  Serious: Yes (Other)
  Sender: FDA-Public Use
  Company Number: ZA-BRISTOL-MYERS SQUIBB COMPANY-12610010

PATIENT
  Age: 51 Year
  Sex: Male
  Weight: 50 kg

DRUGS (5)
  1. ATAZANAVIR [Suspect]
     Dosage: THERAPY DISCONTINUED ON 09-JUN-2004;RE-STARTED 20-JUN-2004.
     Route: 048
     Dates: start: 20040601
  2. STAVUDINE XR [Interacting]
     Dosage: THERAPY DISCONTINUED ON 09-JUN-2004;RE-STARTED 20-JUN-2004.
     Route: 048
     Dates: start: 20040601
  3. LAMIVUDINE [Interacting]
     Dosage: THERAPY DISCONTINUED ON 09-JUN-2004;RE-STARTED 20-JUN-2004.
     Route: 048
     Dates: start: 20040601
  4. CITALOPRAM [Interacting]
     Dates: start: 20040301, end: 20040609
  5. BROMAZEPAM [Interacting]
     Dosage: AT NIGHT
     Dates: start: 20040301, end: 20040609

REACTIONS (7)
  - BODY TEMPERATURE DECREASED [None]
  - DRUG INTERACTION [None]
  - MEDICATION ERROR [None]
  - NAUSEA [None]
  - NYSTAGMUS [None]
  - OCULOGYRATION [None]
  - SINUSITIS [None]
